FAERS Safety Report 7407250-0 (Version None)
Quarter: 2011Q2

REPORT INFORMATION
  Report Type: 
  Country: None (occurrence: None)
  Receive Date: 20110411
  Receipt Date: 20110329
  Transmission Date: 20111010
  Serious: Yes (Hospitalization)
  Sender: FDA-Public Use
  Company Number: PHHY2010US82471

PATIENT
  Sex: Female
  Weight: 185 kg

DRUGS (5)
  1. XANAX [Concomitant]
     Indication: ANXIETY
     Dosage: 0.5 MG, BID
     Route: 048
  2. GLEEVEC [Suspect]
     Indication: GASTROINTESTINAL STROMAL TUMOUR
     Dosage: 400 MG
     Route: 048
     Dates: start: 20101001, end: 20101101
  3. SYNTHROID [Concomitant]
     Dosage: 75 MG, QD
     Route: 048
  4. PROZAC [Concomitant]
     Dosage: 20 MG, QD
     Route: 048
  5. GLEEVEC [Suspect]
     Dosage: 400 MG, UNK
     Route: 048
     Dates: start: 20101201

REACTIONS (1)
  - ABSCESS [None]
